FAERS Safety Report 7438126-0 (Version None)
Quarter: 2011Q2

REPORT INFORMATION
  Report Type: 
  Country: None (occurrence: None)
  Receive Date: 20110426
  Receipt Date: 20110412
  Transmission Date: 20111010
  Serious: Yes (Hospitalization)
  Sender: FDA-Public Use
  Company Number: FR-PFIZER INC-2011088374

PATIENT
  Age: 35 Year
  Sex: Male

DRUGS (7)
  1. TAVANIC [Suspect]
     Indication: PYREXIA
     Dosage: 500 MG, 1X/DAY
     Route: 048
     Dates: start: 20110106, end: 20110106
  2. OXOMEMAZINE [Suspect]
     Indication: PRODUCT USED FOR UNKNOWN INDICATION
     Dosage: UNK
     Route: 048
     Dates: start: 20110103
  3. DETURGYLONE [Suspect]
     Indication: PRODUCT USED FOR UNKNOWN INDICATION
     Dosage: 178 MG, 1X/DAY
     Route: 045
     Dates: start: 20110103
  4. TERBINAFINE [Suspect]
     Dosage: UNK
     Dates: start: 20110103, end: 20110107
  5. IBUPROFEN [Suspect]
     Indication: PYREXIA
     Dosage: 400 MG, 3X/DAY
     Route: 048
     Dates: start: 20110103, end: 20110107
  6. AMOXICILLIN [Suspect]
     Indication: TONSILLITIS
     Dosage: 1 G, 3X/DAY
     Route: 048
     Dates: start: 20101223
  7. PARACETAMOL [Suspect]
     Indication: PYREXIA
     Dosage: UNK
     Route: 048
     Dates: start: 20110103

REACTIONS (3)
  - PHARYNGITIS [None]
  - RASH SCARLATINIFORM [None]
  - RASH ERYTHEMATOUS [None]
